FAERS Safety Report 20525480 (Version 1)
Quarter: 2022Q1

REPORT INFORMATION
  Report Type: Spontaneous
  Country: US (occurrence: None)
  Receive Date: 20220225
  Receipt Date: 20220225
  Transmission Date: 20220423
  Serious: Yes (Hospitalization)
  Sender: FDA-Public Use
  Company Number: None

PATIENT
  Age: 53 Year
  Sex: Male

DRUGS (1)
  1. ADEMPAS [Suspect]
     Active Substance: RIOCIGUAT
     Indication: Pulmonary hypertension
     Dosage: 1MG TID ORAL?
     Route: 048
     Dates: start: 20211202, end: 20220214

REACTIONS (4)
  - Chest discomfort [None]
  - Pulmonary embolism [None]
  - Respiratory failure [None]
  - Haemoptysis [None]

NARRATIVE: CASE EVENT DATE: 20220214
